FAERS Safety Report 9594635 (Version 1)
Quarter: 2013Q3

REPORT INFORMATION
  Report Type: Spontaneous
  Country: US (occurrence: None)
  Receive Date: 20130927
  Receipt Date: 20130927
  Transmission Date: 20140515
  Serious: No
  Sender: FDA-Public Use
  Company Number: CABO-13002861

PATIENT
  Age: 62 Year
  Sex: Female

DRUGS (6)
  1. COMETRIQ (CABOZANTINIB) CAPSULE [Suspect]
     Indication: THYROID CANCER
     Route: 048
     Dates: start: 20130607, end: 20130704
  2. SYNTHROID [Concomitant]
  3. ASPIRIN [Concomitant]
  4. CALCIUM [Concomitant]
  5. CRESTOR [Concomitant]
  6. ESTRACE [Concomitant]

REACTIONS (13)
  - Cough [None]
  - Nasal congestion [None]
  - Vulvovaginal pruritus [None]
  - Contusion [None]
  - Blood pressure increased [None]
  - Headache [None]
  - Fatigue [None]
  - Blister [None]
  - Rash [None]
  - Dry skin [None]
  - Palmar-plantar erythrodysaesthesia syndrome [None]
  - Stomatitis [None]
  - Ageusia [None]
